FAERS Safety Report 25930524 (Version 1)
Quarter: 2025Q4

REPORT INFORMATION
  Report Type: Report from Study
  Country: US (occurrence: US)
  Receive Date: 20251016
  Receipt Date: 20251016
  Transmission Date: 20260118
  Serious: Yes (Other)
  Sender: ABBVIE
  Company Number: US-ABBVIE-6505031

PATIENT
  Sex: Female

DRUGS (1)
  1. RINVOQ [Suspect]
     Active Substance: UPADACITINIB
     Indication: Dermatitis atopic
     Route: 048
     Dates: start: 20241231

REACTIONS (4)
  - Systemic lupus erythematosus [Not Recovered/Not Resolved]
  - Immune system disorder [Not Recovered/Not Resolved]
  - Asthma [Not Recovered/Not Resolved]
  - Multiple allergies [Not Recovered/Not Resolved]
